FAERS Safety Report 21942189 (Version 1)
Quarter: 2023Q1

REPORT INFORMATION
  Report Type: Report from Study
  Country: PL (occurrence: PL)
  Receive Date: 20230202
  Receipt Date: 20230202
  Transmission Date: 20230417
  Serious: Yes (Death, Hospitalization, Other)
  Sender: FDA-Public Use
  Company Number: PL-EXELIXIS-XL18423059447

PATIENT
  Age: 66 Year
  Sex: Male

DRUGS (2)
  1. PLACEBO [Suspect]
     Active Substance: UNSPECIFIED INGREDIENT
     Indication: Renal cell carcinoma
     Dosage: MOST RECENT DOSE: 03-JAN-2023 (20MG).?DRUG INTERRUPTED ON 04-JAN-2023
     Route: 048
     Dates: start: 20210324
  2. IPILIMUMAB [Suspect]
     Active Substance: IPILIMUMAB
     Indication: Renal cell carcinoma
     Dosage: Q3WEEKS X 4 DOSES?MOST RECENT DOSE: 26-MAY-2021
     Route: 042
     Dates: start: 20210324, end: 20210526

REACTIONS (2)
  - Hypertransaminasaemia [Recovering/Resolving]
  - Death [Fatal]

NARRATIVE: CASE EVENT DATE: 20230104
